FAERS Safety Report 5844695-4 (Version None)
Quarter: 2008Q3

REPORT INFORMATION
  Report Type: 
  Country: None (occurrence: None)
  Receive Date: 20080812
  Receipt Date: 20080730
  Transmission Date: 20090109
  Serious: Yes (Hospitalization)
  Sender: FDA-Public Use
  Company Number: DSA_32212_2008

PATIENT
  Age: 19 Year
  Sex: Male
  Weight: 70 kg

DRUGS (6)
  1. DILTIAZEM [Suspect]
     Dosage: (3.6 G UNACCOUNTED)
  2. ATENOLOL [Suspect]
     Dosage: (0.5 G UNACCOUNTED)
  3. VENLAFAXINE HCL [Suspect]
     Dosage: (4.2 G UNACCOUNTED)
  4. IRBESARTAN [Suspect]
     Dosage: (1.5-0.125 G UNACCOUNTED)
  5. CLOZAPINE [Suspect]
     Dosage: (3 G UNACCOUNTED)
  6. SERTRALINE [Suspect]
     Dosage: (0.6 G UNACCOUNTED)

REACTIONS (16)
  - BLOOD PRESSURE IMMEASURABLE [None]
  - DRUG TOXICITY [None]
  - GENERAL PHYSICAL HEALTH DETERIORATION [None]
  - GLASGOW COMA SCALE ABNORMAL [None]
  - HAEMODIALYSIS [None]
  - HYPOTENSION [None]
  - HYPOTHERMIA [None]
  - MULTIPLE DRUG OVERDOSE [None]
  - NODAL RHYTHM [None]
  - RESPIRATORY DISORDER [None]
  - SEDATION [None]
  - SELF-MEDICATION [None]
  - SINUS BRADYCARDIA [None]
  - THROMBOCYTOPENIA [None]
  - TREATMENT FAILURE [None]
  - VASODILATATION [None]
